FAERS Safety Report 7439961-5 (Version None)
Quarter: 2011Q2

REPORT INFORMATION
  Report Type: 
  Country: None (occurrence: None)
  Receive Date: 20110427
  Receipt Date: 20110413
  Transmission Date: 20111010
  Serious: Yes (Congenital Anomaly)
  Sender: FDA-Public Use
  Company Number: AU-WATSON-2011-05771

PATIENT

DRUGS (4)
  1. CITALOPRAM HYDROBROMIDE [Suspect]
     Indication: DRUG EXPOSURE DURING PREGNANCY
     Dosage: UNK
     Route: 064
  2. FLUOXETINE [Suspect]
     Indication: DRUG EXPOSURE DURING PREGNANCY
     Dosage: UNK
     Route: 064
  3. FLUVOXAMINE MALEATE [Suspect]
     Indication: DRUG EXPOSURE DURING PREGNANCY
     Dosage: UNK
     Route: 064
  4. SERTRALINE HYDROCHLORIDE [Suspect]
     Indication: DRUG EXPOSURE DURING PREGNANCY
     Dosage: UNK
     Route: 064

REACTIONS (8)
  - PREMATURE LABOUR [None]
  - PATENT DUCTUS ARTERIOSUS [None]
  - CONGENITAL CYSTIC KIDNEY DISEASE [None]
  - MULTIPLE CARDIAC DEFECTS [None]
  - SMALL FOR DATES BABY [None]
  - VASCULAR ANOMALY [None]
  - ATRIAL SEPTAL DEFECT [None]
  - LIMB DEFORMITY [None]
